FAERS Safety Report 7776597-0 (Version None)
Quarter: 2011Q3

REPORT INFORMATION
  Report Type: 
  Country: None (occurrence: None)
  Receive Date: 20110926
  Receipt Date: 20110916
  Transmission Date: 20111222
  Serious: Yes (Hospitalization)
  Sender: FDA-Public Use
  Company Number: SE-JNJFOC-20110906503

PATIENT
  Sex: Female

DRUGS (3)
  1. RISPERDAL [Suspect]
     Indication: SELF INJURIOUS BEHAVIOUR
     Route: 065
  2. MIRTAZAPINE [Suspect]
     Indication: SELF INJURIOUS BEHAVIOUR
     Route: 065
  3. RISPERIDONE [Suspect]
     Indication: SELF INJURIOUS BEHAVIOUR
     Route: 065

REACTIONS (2)
  - FATIGUE [None]
  - POISONING [None]
